FAERS Safety Report 10341800 (Version 1)
Quarter: 2014Q3

REPORT INFORMATION
  Report Type: Report from Study
  Country: AU (occurrence: None)
  Receive Date: 20140722
  Receipt Date: 20140722
  Transmission Date: 20150326
  Serious: Yes (Other)
  Sender: FDA-Public Use
  Company Number: 2014-19959

PATIENT
  Age: 78 Year
  Sex: Female

DRUGS (1)
  1. EYLEA [Suspect]
     Active Substance: AFLIBERCEPT
     Indication: AGE-RELATED MACULAR DEGENERATION

REACTIONS (6)
  - Retinal haemorrhage [None]
  - Ocular discomfort [None]
  - Eye irritation [None]
  - Eye pruritus [None]
  - Ocular hyperaemia [None]
  - Inappropriate schedule of drug administration [None]
